FAERS Safety Report 8517771-5 (Version None)
Quarter: 2012Q3

REPORT INFORMATION
  Report Type: 
  Country: None (occurrence: None)
  Receive Date: 20120718
  Receipt Date: 20120709
  Transmission Date: 20120928
  Serious: Yes (Other)
  Sender: FDA-Public Use
  Company Number: SE-JNJFOC-20120109675

PATIENT
  Sex: Male

DRUGS (1)
  1. REMICADE [Suspect]
     Indication: PSORIATIC ARTHROPATHY
     Route: 042
     Dates: start: 20110601

REACTIONS (6)
  - PSORIATIC ARTHROPATHY [None]
  - MUSCLE RIGIDITY [None]
  - FATIGUE [None]
  - SENSORY LOSS [None]
  - MUSCLE DISORDER [None]
  - PAIN [None]
